FAERS Safety Report 11512504 (Version 1)
Quarter: 2015Q3

REPORT INFORMATION
  Report Type: Spontaneous
  Country: US (occurrence: None)
  Receive Date: 20150915
  Receipt Date: 20150915
  Transmission Date: 20151125
  Serious: No
  Sender: FDA-Public Use
  Company Number: None

PATIENT
  Age: 64 Year
  Sex: Female
  Weight: 77.11 kg

DRUGS (7)
  1. POTASSIUM [Concomitant]
     Active Substance: POTASSIUM
  2. JARDIANCE [Suspect]
     Active Substance: EMPAGLIFLOZIN
     Indication: BLOOD GLUCOSE INCREASED
     Dosage: BY MOUTH
     Route: 048
     Dates: start: 20150805, end: 20150812
  3. LISINOPRIL. [Concomitant]
     Active Substance: LISINOPRIL
  4. FOLIC ACID. [Concomitant]
     Active Substance: FOLIC ACID
  5. ATORVASTATIN [Concomitant]
     Active Substance: ATORVASTATIN
  6. METFORMIN [Concomitant]
     Active Substance: METFORMIN HYDROCHLORIDE
  7. HYDROCLORAZIDE [Concomitant]

REACTIONS (3)
  - Cardiac murmur [None]
  - Fatigue [None]
  - Tremor [None]

NARRATIVE: CASE EVENT DATE: 20150811
